FAERS Safety Report 25418769 (Version 1)
Quarter: 2025Q2

REPORT INFORMATION
  Report Type: Spontaneous
  Country: US (occurrence: None)
  Receive Date: 20250610
  Receipt Date: 20250610
  Transmission Date: 20250716
  Serious: Yes (Hospitalization)
  Sender: FDA-CTU
  Company Number: None

PATIENT
  Sex: Male

DRUGS (4)
  1. NEUPOGEN [Suspect]
     Active Substance: FILGRASTIM
     Indication: Rectal cancer
  2. NEUPOGEN [Suspect]
     Active Substance: FILGRASTIM
     Indication: Anal cancer
  3. NEUPOGEN [Suspect]
     Active Substance: FILGRASTIM
     Indication: Anal cancer
  4. CAPECITABINE [Concomitant]
     Active Substance: CAPECITABINE

REACTIONS (1)
  - Hospitalisation [None]
